FAERS Safety Report 5465753-2 (Version None)
Quarter: 2007Q3

REPORT INFORMATION
  Report Type: 
  Country: None (occurrence: None)
  Receive Date: 20070924
  Receipt Date: 20070918
  Transmission Date: 20080115
  Serious: Yes (Other)
  Sender: FDA-Public Use
  Company Number: A0682758A

PATIENT
  Age: 78 Year
  Sex: Female

DRUGS (11)
  1. VALTREX [Suspect]
     Indication: HERPES VIRUS INFECTION
     Dosage: 500MG PER DAY
     Route: 048
     Dates: start: 19980101
  2. GEMFIBROZIL [Concomitant]
  3. LIPITOR [Concomitant]
  4. DILTIAZEM [Concomitant]
  5. WARFARIN SODIUM [Concomitant]
  6. UNSPECIFIED MEDICATION [Concomitant]
  7. NIASPAN [Concomitant]
  8. ACID REFLUX MED. [Concomitant]
  9. ATENOL [Concomitant]
  10. SYNTHROID [Concomitant]
  11. LORTAB [Concomitant]

REACTIONS (5)
  - APHONIA [None]
  - DRUG INEFFECTIVE [None]
  - FALL [None]
  - HIP FRACTURE [None]
  - SINUS OPERATION [None]
